FAERS Safety Report 9412963 (Version 1)
Quarter: 2013Q2

REPORT INFORMATION
  Report Type: Spontaneous
  Country: GB (occurrence: None)
  Receive Date: 20130625
  Receipt Date: 20130625
  Transmission Date: 20140414
  Serious: Yes (Other)
  Sender: FDA-Public Use
  Company Number: GER/UKI/13/0030050

PATIENT
  Age: 42 Year
  Sex: Male
  Weight: 75 kg

DRUGS (2)
  1. CETIRIZINE [Suspect]
     Indication: SEASONAL ALLERGY
     Dosage: , 1 D
     Route: 048
     Dates: start: 20130515, end: 20130516
  2. FLUCLOXACILLIN (FLUCLOXACILLIN) [Concomitant]

REACTIONS (7)
  - Malaise [None]
  - Hyperhidrosis [None]
  - Pain [None]
  - Dizziness [None]
  - Influenza like illness [None]
  - Headache [None]
  - Dysuria [None]
